FAERS Safety Report 4775431-0 (Version None)
Quarter: 2005Q3

REPORT INFORMATION
  Report Type: 
  Country: None (occurrence: None)
  Receive Date: 20050921
  Receipt Date: 20050921
  Transmission Date: 20060218
  Serious: Yes (Life-Threatening, Hospitalization)
  Sender: FDA-Public Use
  Company Number: None

PATIENT
  Sex: Male

DRUGS (13)
  1. CLOZAPINE [Suspect]
     Indication: SCHIZOPHRENIA
     Dosage: 100 MGAM, 200 MG TID PO
     Route: 048
  2. CLOZAPINE [Suspect]
     Indication: SCHIZOPHRENIA
     Dosage: 75 MG AM PO
     Route: 048
  3. ASPIRIN [Concomitant]
  4. DIOCUSATE [Concomitant]
  5. GEMFIBROZIL [Concomitant]
  6. IBUPROFEN [Concomitant]
  7. LACTULOSE [Concomitant]
  8. LORAZEPAM [Concomitant]
  9. METOPROLOL [Concomitant]
  10. OMEPRAZOLE [Concomitant]
  11. RISPERIDONE [Concomitant]
  12. VITAMIN B COMPLEX CAP [Concomitant]
  13. COMPLEX WITH VIT B12 [Concomitant]

REACTIONS (2)
  - GRANULOCYTE COUNT DECREASED [None]
  - WHITE BLOOD CELL COUNT DECREASED [None]
